FAERS Safety Report 8953713 (Version 1)
Quarter: 2012Q4

REPORT INFORMATION
  Report Type: 
  Country: US (occurrence: US)
  Receive Date: 20121206
  Receipt Date: 20121206
  Transmission Date: 20130627
  Serious: No
  Sender: FDA-Public Use
  Company Number: US-ASTRAZENECA-2012SE90110

PATIENT
  Age: 59 Year
  Sex: Female
  Weight: 121.6 kg

DRUGS (10)
  1. NEXIUM [Suspect]
     Indication: GASTROOESOPHAGEAL REFLUX DISEASE
     Route: 048
     Dates: start: 2001
  2. PRILOSEC [Suspect]
     Route: 048
     Dates: end: 2001
  3. PLAQUENIL [Concomitant]
  4. SYNTHROID [Concomitant]
  5. CYMBALTA [Concomitant]
  6. FLEXERIL [Concomitant]
  7. ALLOPURINOL [Concomitant]
  8. VITAMIN SUPPLEMENTS [Concomitant]
  9. GLYBERIDE [Concomitant]
  10. GLUMETRA [Concomitant]

REACTIONS (16)
  - Gastric polyps [Unknown]
  - Diabetes mellitus [Unknown]
  - Weight decreased [Unknown]
  - Dysphagia [Unknown]
  - Regurgitation [Unknown]
  - Depression [Unknown]
  - Pain [Unknown]
  - Idiopathic thrombocytopenic purpura [Unknown]
  - Autoimmune thyroiditis [Unknown]
  - Sjogren^s syndrome [Unknown]
  - Platelet count decreased [Unknown]
  - Rheumatoid arthritis [Unknown]
  - Systemic lupus erythematosus [Unknown]
  - Dyspepsia [Unknown]
  - Immune system disorder [Unknown]
  - Off label use [Unknown]
